FAERS Safety Report 23192471 (Version 2)
Quarter: 2023Q4

REPORT INFORMATION
  Report Type: Spontaneous
  Country: US (occurrence: US)
  Receive Date: 20231116
  Receipt Date: 20231204
  Transmission Date: 20240110
  Serious: Yes (Hospitalization)
  Sender: FDA-Public Use
  Company Number: US-PARI RESPIRATORY EQUIPMENT, INC.-2023PAR00049

PATIENT
  Sex: Female

DRUGS (3)
  1. KITABIS PAK [Suspect]
     Active Substance: TOBRAMYCIN
     Indication: Cystic fibrosis
     Dosage: INHALE THE CONTENTS OF 1 AMPULE VIA NEBULIZER 2X/DAY FOR 28 DAYS ON, THEN 28 DAYS OFF
     Dates: start: 202103
  2. KITABIS PAK [Suspect]
     Active Substance: TOBRAMYCIN
     Indication: Lung disorder
  3. PULMOZYME [Concomitant]
     Active Substance: DORNASE ALFA

REACTIONS (1)
  - Hospitalisation [Unknown]
